FAERS Safety Report 5151136-1 (Version None)
Quarter: 2006Q4

REPORT INFORMATION
  Report Type: 
  Country: None (occurrence: None)
  Receive Date: 20061114
  Receipt Date: 20061114
  Transmission Date: 20070319
  Serious: No
  Sender: FDA-Public Use
  Company Number: None

PATIENT
  Age: 50 Year
  Sex: Female
  Weight: 70 kg

DRUGS (1)
  1. ZICAM [Suspect]
     Indication: NASOPHARYNGITIS
     Dosage: 1 SPRAY Q 2-4 HOURS NASAL
     Route: 045
     Dates: start: 20060901, end: 20060901

REACTIONS (10)
  - AGEUSIA [None]
  - ANOSMIA [None]
  - BURNING SENSATION [None]
  - CHEMICAL INJURY [None]
  - HOT FLUSH [None]
  - HYPERAESTHESIA [None]
  - NASAL CONGESTION [None]
  - NASAL DISCOMFORT [None]
  - OLFACTORY NERVE DISORDER [None]
  - SINUS HEADACHE [None]
